FAERS Safety Report 7740635-1 (Version None)
Quarter: 2011Q3

REPORT INFORMATION
  Report Type: 
  Country: None (occurrence: None)
  Receive Date: 20110909
  Receipt Date: 20110830
  Transmission Date: 20111222
  Serious: No
  Sender: FDA-Public Use
  Company Number: US-ALEXION-A201100072

PATIENT
  Sex: Female

DRUGS (12)
  1. SOLIRIS [Suspect]
     Indication: PAROXYSMAL NOCTURNAL HAEMOGLOBINURIA
     Dosage: 600 MG, QW
     Route: 042
     Dates: start: 20100120, end: 20100209
  2. SOLIRIS [Suspect]
     Dosage: 1200  MG, Q10 DAYS
     Route: 042
     Dates: start: 20110807, end: 20110801
  3. SOLIRIS [Suspect]
     Dosage: 900 MG, Q2W
     Route: 042
     Dates: start: 20100216
  4. SOLIRIS [Suspect]
     Dosage: 900 MG, Q10DAYS
     Route: 042
     Dates: start: 20110801
  5. ASCORBIC ACID [Concomitant]
     Dosage: UNK
  6. WELLBUTRIN XL [Concomitant]
     Dosage: UNK
  7. FOLIC ACID [Concomitant]
     Dosage: UNK
  8. VITAMIN B-12 [Concomitant]
     Indication: VITAMIN B12 DEFICIENCY
     Dosage: UNK
  9. XANAX [Concomitant]
     Dosage: UNK
  10. PRISTIQ [Concomitant]
     Dosage: UNK
  11. AMBIEN [Concomitant]
     Indication: INSOMNIA
     Dosage: UNK
  12. ZOFRAN [Concomitant]
     Dosage: PRN

REACTIONS (8)
  - ANAEMIA [None]
  - PAROXYSMAL NOCTURNAL HAEMOGLOBINURIA [None]
  - CONDITION AGGRAVATED [None]
  - HAEMOLYSIS [None]
  - PREGNANCY [None]
  - WEIGHT INCREASED [None]
  - FATIGUE [None]
  - HAEMATURIA [None]
